FAERS Safety Report 4429593-5 (Version None)
Quarter: 2004Q3

REPORT INFORMATION
  Report Type: 
  Country: None (occurrence: None)
  Receive Date: 20040816
  Receipt Date: 20040802
  Transmission Date: 20050211
  Serious: No
  Sender: FDA-Public Use
  Company Number: 2004GB01890

PATIENT
  Age: 61 Year
  Sex: Female
  Weight: 76 kg

DRUGS (9)
  1. ARIMIDEX [Suspect]
     Indication: BREAST CANCER
     Dosage: 1 MG DAILY; PO
     Route: 048
     Dates: start: 20040607, end: 20040614
  2. TRANDATE [Concomitant]
  3. LIPITOR [Concomitant]
  4. RANITIDINE [Concomitant]
  5. SENNA [Concomitant]
  6. FYBOGEL [Concomitant]
  7. FLUOROURACIL [Concomitant]
  8. EPIRUBICIN [Concomitant]
  9. CYCLPHOSPHAMIDE [Concomitant]

REACTIONS (4)
  - DYSPNOEA [None]
  - OEDEMA PERIPHERAL [None]
  - OROPHARYNGEAL SWELLING [None]
  - SWELLING FACE [None]
